FAERS Safety Report 20195572 (Version 1)
Quarter: 2021Q4

REPORT INFORMATION
  Report Type: Report from Study
  Country: US (occurrence: US)
  Receive Date: 20211216
  Receipt Date: 20211216
  Transmission Date: 20220304
  Serious: Yes (Life-Threatening, Other)
  Sender: FDA-Public Use
  Company Number: US-TEVA-2021-US-1986835

PATIENT
  Age: 56 Year
  Sex: Male

DRUGS (2)
  1. PREDNISONE [Suspect]
     Active Substance: PREDNISONE
     Indication: Cold type haemolytic anaemia
     Dosage: 1 MG/KG DAILY; TAPER OVER 4 WEEKS STARTING AT 1 MG/KG/DAY
     Route: 065
  2. PRIVIGEN [Suspect]
     Active Substance: HUMAN IMMUNOGLOBULIN G
     Indication: Cold type haemolytic anaemia
     Dosage: DOSE: 1 G/ KG 5 DAYS
     Route: 042

REACTIONS (1)
  - Therapy non-responder [Unknown]
